FAERS Safety Report 4890468-9 (Version None)
Quarter: 2005Q4

REPORT INFORMATION
  Report Type: 
  Country: None (occurrence: None)
  Receive Date: 20051216
  Receipt Date: 20050818
  Transmission Date: 20060501
  Serious: No
  Sender: FDA-Public Use
  Company Number: BDI-007463

PATIENT
  Age: 77 Year
  Sex: Female
  Weight: 91 kg

DRUGS (2)
  1. MULTIHANCE [Suspect]
     Indication: BRAIN NEOPLASM
     Dosage: 20 ML ONCE IV
     Route: 042
     Dates: start: 20050816, end: 20050816
  2. MULTIHANCE [Suspect]
     Indication: NUCLEAR MAGNETIC RESONANCE IMAGING
     Dosage: 20 ML ONCE IV
     Route: 042
     Dates: start: 20050816, end: 20050816

REACTIONS (2)
  - MALAISE [None]
  - VOMITING [None]
